FAERS Safety Report 7706839-9 (Version None)
Quarter: 2011Q3

REPORT INFORMATION
  Report Type: 
  Country: None (occurrence: None)
  Receive Date: 20110824
  Receipt Date: 20110809
  Transmission Date: 20111222
  Serious: Yes (Hospitalization)
  Sender: FDA-Public Use
  Company Number: US-GLAXOSMITHKLINE-A0834411A

PATIENT
  Age: 48 Year
  Sex: Female
  Weight: 106.4 kg

DRUGS (4)
  1. AVANDIA [Suspect]
     Indication: DIABETES MELLITUS
     Route: 048
     Dates: start: 20031001, end: 20070101
  2. TRIAMTERENE AND HYDROCHLOROTHIAZIDE [Concomitant]
  3. GLIPIZIDE [Concomitant]
  4. AVANDAMET [Suspect]
     Indication: DIABETES MELLITUS
     Route: 048

REACTIONS (5)
  - CARDIAC FAILURE CONGESTIVE [None]
  - MYOCARDIAL INFARCTION [None]
  - CARDIOMYOPATHY [None]
  - THALAMIC INFARCTION [None]
  - CEREBROVASCULAR ACCIDENT [None]
